FAERS Safety Report 10048767 (Version 4)
Quarter: 2014Q2

REPORT INFORMATION
  Report Type: Report from Study
  Country: KR (occurrence: KR)
  Receive Date: 20140331
  Receipt Date: 20140630
  Transmission Date: 20141212
  Serious: Yes (Hospitalization)
  Sender: FDA-Public Use
  Company Number: KR-SA-2014SA030526

PATIENT
  Age: 60 Year
  Sex: Male

DRUGS (29)
  1. OXALIPLATIN [Suspect]
     Indication: OESOPHAGEAL ADENOCARCINOMA
     Route: 042
     Dates: start: 20140205
  2. OXALIPLATIN [Suspect]
     Indication: OESOPHAGEAL ADENOCARCINOMA
     Route: 042
     Dates: start: 20140304
  3. BLINDED THERAPY [Suspect]
     Indication: GASTRIC CANCER
     Dosage: STRENGTH: 600 MG
     Route: 048
     Dates: start: 20140205
  4. FLUOROURACIL [Suspect]
     Indication: OESOPHAGEAL ADENOCARCINOMA
     Route: 040
     Dates: start: 20140304
  5. FLUOROURACIL [Suspect]
     Indication: OESOPHAGEAL ADENOCARCINOMA
     Route: 042
     Dates: start: 20140205
  6. FLUOROURACIL [Suspect]
     Indication: OESOPHAGEAL ADENOCARCINOMA
     Route: 042
     Dates: start: 20140304
  7. FLUOROURACIL [Suspect]
     Indication: OESOPHAGEAL ADENOCARCINOMA
     Route: 042
     Dates: start: 20140205
  8. FOLINIC ACID [Suspect]
     Indication: OESOPHAGEAL ADENOCARCINOMA
     Dosage: FREQUENCY: EVERY 14 DAYS
     Route: 042
     Dates: start: 20140205
  9. FOLINIC ACID [Suspect]
     Indication: OESOPHAGEAL ADENOCARCINOMA
     Route: 042
     Dates: start: 20140304
  10. DEXAMETHASONE [Concomitant]
     Indication: NAUSEA
     Route: 042
     Dates: start: 20140205
  11. DEXAMETHASONE [Concomitant]
     Indication: NAUSEA
     Route: 048
     Dates: start: 20140206
  12. ONSERAN [Concomitant]
     Indication: NAUSEA
     Route: 042
     Dates: start: 20140205
  13. ONSERAN [Concomitant]
     Indication: NAUSEA
     Route: 048
     Dates: start: 20140206
  14. ZANTAC [Concomitant]
     Indication: NAUSEA
     Route: 048
     Dates: start: 20140205
  15. SODIUM BICARBONATE [Concomitant]
     Indication: STOMATITIS
     Route: 048
     Dates: start: 20140205
  16. ULCERMIN [Concomitant]
     Indication: ABDOMINAL PAIN UPPER
     Route: 048
     Dates: start: 20140207
  17. PHAZYME [Concomitant]
     Indication: DYSPEPSIA
     Route: 048
     Dates: start: 20140207
  18. MOTILIUM-M [Concomitant]
     Indication: VOMITING
     Route: 048
     Dates: start: 20140207, end: 20140215
  19. NEXIUM [Concomitant]
     Indication: ABDOMINAL PAIN UPPER
     Route: 048
     Dates: start: 20140207
  20. LIPID EMULSION [Concomitant]
     Indication: FATIGUE
     Route: 042
     Dates: start: 20140127
  21. MUCOPECT [Concomitant]
     Route: 048
     Dates: start: 20140218, end: 20140218
  22. COUGH SYRUP [Concomitant]
     Route: 048
     Dates: start: 20140218, end: 20140309
  23. XYZAL [Concomitant]
     Route: 048
     Dates: start: 20140218, end: 20140218
  24. ULTRACET [Concomitant]
     Route: 048
     Dates: start: 20140218, end: 20140218
  25. PHOSTEN [Concomitant]
     Route: 042
     Dates: start: 20140220, end: 20140220
  26. MULTIVITAMINS [Concomitant]
     Route: 042
     Dates: start: 20140220, end: 20140220
  27. VITAMIN K1 ^ROCHE^ [Concomitant]
     Route: 042
     Dates: start: 20140220, end: 20140220
  28. LIPID EMULSION [Concomitant]
     Route: 042
     Dates: start: 20140225
  29. ALL OTHER THERAPEUTIC PRODUCTS [Concomitant]

REACTIONS (1)
  - Enteritis [Recovered/Resolved]
